FAERS Safety Report 18480011 (Version 3)
Quarter: 2022Q3

REPORT INFORMATION
  Report Type: Spontaneous
  Country: US (occurrence: US)
  Receive Date: 20201109
  Receipt Date: 20220719
  Transmission Date: 20221027
  Serious: No
  Sender: FDA-Public Use
  Company Number: US-VERTEX PHARMACEUTICALS-2020-018868

PATIENT
  Age: 40 Year
  Sex: Female
  Weight: 64 kg

DRUGS (18)
  1. TRIKAFTA [Suspect]
     Active Substance: ELEXACAFTOR\IVACAFTOR\TEZACAFTOR
     Indication: Cystic fibrosis
     Dosage: 2 TABS AM AND 1 TAB PM
     Route: 048
     Dates: start: 20191127
  2. INSULIN NOS [Concomitant]
     Active Substance: INSULIN NOS
  3. ALBUTEROL [Concomitant]
     Active Substance: ALBUTEROL
     Dosage: 2 INHALATIONS TWICE A DAY
  4. ZITHROMAX [Concomitant]
     Active Substance: AZITHROMYCIN DIHYDRATE
     Dosage: 250 MG  EVERY MONDAY, WEDNESDAY AND FRIDAY
     Route: 048
  5. CAYSTON [Concomitant]
     Active Substance: AZTREONAM
     Dosage: 75 MG 3 TIMES
  6. CALTRATE WITH VITAMIN D [Concomitant]
     Active Substance: CALCIUM CARBONATE\CHOLECALCIFEROL
     Dosage: 600 MG
     Route: 048
  7. ZYRTEC [Concomitant]
     Active Substance: CETIRIZINE HYDROCHLORIDE
     Dosage: 10 MG ONCE DAILY
     Route: 048
  8. PULMOZYME [Concomitant]
     Active Substance: DORNASE ALFA
     Dosage: 1 MG/ML
  9. FLONASE [Concomitant]
     Active Substance: FLUTICASONE PROPIONATE
     Dosage: 2 SPRAYS IN TO BOTH NOSTRILS ONCE DAILY
  10. TRESIBA [Concomitant]
     Active Substance: INSULIN DEGLUDEC
     Dosage: 7 UNITS DAILY
  11. NIZORAL [Concomitant]
     Active Substance: KETOCONAZOLE
     Dosage: UNK, QD
     Route: 061
  12. MIRENA [Concomitant]
     Active Substance: LEVONORGESTREL
     Dosage: INSERT 1 IN TO UTERUS
  13. PRILOSEC [Concomitant]
     Active Substance: OMEPRAZOLE MAGNESIUM
     Dosage: 20 MG
     Route: 048
  14. ZENPEP [Concomitant]
     Active Substance: PANCRELIPASE AMYLASE\PANCRELIPASE LIPASE\PANCRELIPASE PROTEASE
     Dosage: 2-3 TABS / MEAL
  15. SODIUM CHLORIDE [Concomitant]
     Active Substance: SODIUM CHLORIDE
     Dosage: 4 ML, BID
  16. NOVOLOG [Concomitant]
     Active Substance: INSULIN ASPART
  17. LEVAQUIN [Concomitant]
     Active Substance: LEVOFLOXACIN
  18. AZITHROMYCIN [Concomitant]
     Active Substance: AZITHROMYCIN

REACTIONS (10)
  - Weight increased [Not Recovered/Not Resolved]
  - Hypersensitivity [Not Recovered/Not Resolved]
  - Gastrointestinal disorder [Not Recovered/Not Resolved]
  - Skin disorder [Unknown]
  - Dairy intolerance [Recovering/Resolving]
  - Gluten sensitivity [Not Recovered/Not Resolved]
  - Bowel movement irregularity [Recovering/Resolving]
  - Abdominal distension [Not Recovered/Not Resolved]
  - Flatulence [Recovered/Resolved]
  - Urticaria [Recovered/Resolved]

NARRATIVE: CASE EVENT DATE: 20200801
